FAERS Safety Report 17237713 (Version 1)
Quarter: 2020Q1

REPORT INFORMATION
  Report Type: Spontaneous
  Country: GB (occurrence: GB)
  Receive Date: 20200106
  Receipt Date: 20200106
  Transmission Date: 20200409
  Serious: Yes (Other)
  Sender: FDA-Public Use
  Company Number: GB-JNJFOC-20191025767

PATIENT
  Age: 77 Year
  Sex: Male

DRUGS (1)
  1. STELARA [Suspect]
     Active Substance: USTEKINUMAB
     Indication: PRODUCT USED FOR UNKNOWN INDICATION
     Route: 058
     Dates: start: 201712

REACTIONS (7)
  - Chronic obstructive pulmonary disease [Unknown]
  - Hypertension [Unknown]
  - Psoriasis [Unknown]
  - Atrial fibrillation [Unknown]
  - Acute kidney injury [Recovered/Resolved]
  - Type 2 diabetes mellitus [Unknown]
  - Lower respiratory tract infection [Recovered/Resolved]

NARRATIVE: CASE EVENT DATE: 201910
